FAERS Safety Report 12413072 (Version 2)
Quarter: 2016Q2

REPORT INFORMATION
  Report Type: Report from Study
  Country: US (occurrence: US)
  Receive Date: 20160527
  Receipt Date: 20160531
  Transmission Date: 20160815
  Serious: Yes (Hospitalization, Other)
  Sender: FDA-Public Use
  Company Number: US-BAYER-2015-141559

PATIENT
  Age: 82 Year
  Sex: Female

DRUGS (5)
  1. NEXAVAR [Suspect]
     Active Substance: SORAFENIB
     Indication: SOFT TISSUE SARCOMA
     Dosage: 400 MG DAILY
     Route: 048
     Dates: start: 2015, end: 20150506
  2. NEXAVAR [Suspect]
     Active Substance: SORAFENIB
     Indication: SOFT TISSUE SARCOMA
     Dosage: 200 MG, QD
     Route: 048
     Dates: start: 20150408, end: 2015
  3. NEXAVAR [Suspect]
     Active Substance: SORAFENIB
     Indication: SOFT TISSUE SARCOMA
     Dosage: 400 MG, QD
     Route: 048
  4. NEXAVAR [Suspect]
     Active Substance: SORAFENIB
     Indication: SOFT TISSUE SARCOMA
     Dosage: 200 MG, QD, EXCEPT ON WEDNESDAY AND SUNDAY
     Route: 048
     Dates: start: 2015
  5. NEXAVAR [Suspect]
     Active Substance: SORAFENIB
     Indication: SOFT TISSUE SARCOMA
     Dosage: 200 MG, BID
     Route: 048
     Dates: start: 20150629

REACTIONS (6)
  - Cerebrovascular accident [Unknown]
  - Arthralgia [Not Recovered/Not Resolved]
  - Fatigue [Not Recovered/Not Resolved]
  - Off label use [None]
  - Blood pressure increased [Not Recovered/Not Resolved]
  - Cerebrovascular accident [None]

NARRATIVE: CASE EVENT DATE: 20150409
